FAERS Safety Report 10688252 (Version 1)
Quarter: 2015Q1

REPORT INFORMATION
  Report Type: Spontaneous
  Country: DE (occurrence: CA)
  Receive Date: 20150102
  Receipt Date: 20150102
  Transmission Date: 20150720
  Serious: Yes (Other)
  Sender: FDA-Public Use
  Company Number: CA-FRI-1000073434

PATIENT
  Sex: Female
  Weight: 82 kg

DRUGS (7)
  1. MEMANTINE [Suspect]
     Active Substance: MEMANTINE
     Dosage: 15 MG
     Route: 048
  2. MEMANTINE [Suspect]
     Active Substance: MEMANTINE
     Indication: DEMENTIA ALZHEIMER^S TYPE
     Dosage: 20 MG
     Route: 048
     Dates: end: 20140723
  3. CRESTOR [Concomitant]
     Active Substance: ROSUVASTATIN CALCIUM
     Dosage: 5 MG
     Route: 048
  4. SERTRALINE [Concomitant]
     Active Substance: SERTRALINE HYDROCHLORIDE
     Dosage: 50 MG
     Route: 048
  5. MEMANTINE [Suspect]
     Active Substance: MEMANTINE
     Indication: SENILE DEMENTIA
  6. MEMANTINE [Suspect]
     Active Substance: MEMANTINE
     Indication: DEMENTIA ALZHEIMER^S TYPE
     Dosage: 5 MG
     Route: 048
     Dates: start: 20140604
  7. MEMANTINE [Suspect]
     Active Substance: MEMANTINE
     Indication: SENILE DEMENTIA
     Dosage: 10 MG
     Route: 048

REACTIONS (1)
  - Renal impairment [Recovered/Resolved]
